FAERS Safety Report 11516462 (Version 1)
Quarter: 2015Q3

REPORT INFORMATION
  Report Type: Spontaneous
  Country: US (occurrence: None)
  Receive Date: 20150915
  Receipt Date: 20150915
  Transmission Date: 20151125
  Serious: Yes (Other)
  Sender: FDA-Public Use
  Company Number: 001980988A

PATIENT
  Age: 24 Year
  Sex: Female

DRUGS (1)
  1. PROACTIV PLUS PORE TARGETING TREATMENT [Suspect]
     Active Substance: BENZOYL PEROXIDE
     Indication: ACNE
     Dosage: ONCE DAILY DERMAL
     Dates: start: 20150324, end: 20150424

REACTIONS (2)
  - Eye swelling [None]
  - Swelling face [None]

NARRATIVE: CASE EVENT DATE: 20150424
